FAERS Safety Report 4394282-2 (Version None)
Quarter: 2004Q3

REPORT INFORMATION
  Report Type: 
  Country: None (occurrence: None)
  Receive Date: 20040707
  Receipt Date: 20040629
  Transmission Date: 20050211
  Serious: Yes (Death)
  Sender: FDA-Public Use
  Company Number: USA-2004-0014789

PATIENT
  Age: 51 Year
  Sex: Female
  Weight: 54 kg

DRUGS (11)
  1. OXYCONTIN [Suspect]
     Dosage: 80 MG, QID
  2. VALIUM [Suspect]
     Dosage: 10 MG, TID
     Route: 048
  3. TRAZODONE HCL [Concomitant]
  4. SOMA [Concomitant]
  5. PROZAC [Concomitant]
  6. PREMARIN [Concomitant]
  7. LAMICTAL [Concomitant]
  8. DETROL [Concomitant]
  9. LOMOTIL (ATROPINE DULFATE, DIPHENOXYLATE HYDROCHLORIDE) [Concomitant]
  10. LASIX [Concomitant]
  11. COMPAZINE [Concomitant]

REACTIONS (1)
  - DEATH [None]
